FAERS Safety Report 4300140-1 (Version None)
Quarter: 2004Q1

REPORT INFORMATION
  Report Type: 
  Country: None (occurrence: None)
  Receive Date: 20040218
  Receipt Date: 20040206
  Transmission Date: 20041129
  Serious: Yes (Hospitalization)
  Sender: FDA-Public Use
  Company Number: SE-SHR-03-018938

PATIENT
  Age: 67 Year
  Sex: Male

DRUGS (8)
  1. CAMPATH [Suspect]
     Indication: CHRONIC LYMPHOCYTIC LEUKAEMIA
     Dosage: 30 MG, 3 TIMES WEEKLY, SUBCUTANEOUS
     Route: 058
     Dates: start: 20000911, end: 20010125
  2. PARACETAMOL [Concomitant]
  3. ANTI-HISTAMINE TAB [Concomitant]
  4. CORTISONE (CORTISONE) [Concomitant]
  5. TRIMETHOPRIUM [Concomitant]
  6. SULFAMETHOXAZOLE [Concomitant]
  7. ACYCLOVIR [Concomitant]
  8. FLUCONAZOLE [Concomitant]

REACTIONS (4)
  - DIABETES MELLITUS INSULIN-DEPENDENT [None]
  - DYSARTHRIA [None]
  - HYPOTHYROIDISM [None]
  - NEUROLOGICAL SYMPTOM [None]
